FAERS Safety Report 7618209-2 (Version None)
Quarter: 2011Q3

REPORT INFORMATION
  Report Type: 
  Country: None (occurrence: None)
  Receive Date: 20110718
  Receipt Date: 20110711
  Transmission Date: 20111222
  Serious: Yes (Death, Hospitalization)
  Sender: FDA-Public Use
  Company Number: US-GLAXOSMITHKLINE-A0936295A

PATIENT
  Age: 42 Year
  Sex: Male

DRUGS (2)
  1. MULTIPLE DRUGS [Concomitant]
  2. COREG [Suspect]
     Indication: CARDIAC DISORDER
     Dosage: 6.25MG TWICE PER DAY
     Route: 048

REACTIONS (1)
  - CARDIAC ARREST [None]
